FAERS Safety Report 9346877 (Version 1)
Quarter: 2013Q2

REPORT INFORMATION
  Report Type: Spontaneous
  Country: US (occurrence: US)
  Receive Date: 20130613
  Receipt Date: 20130613
  Transmission Date: 20140414
  Serious: No
  Sender: FDA-Public Use
  Company Number: US-B.I. PHARMACEUTICALS,INC./RIDGEFIELD-2013-BI-16159BP

PATIENT
  Age: 63 Year
  Sex: Male

DRUGS (10)
  1. TRADJENTA [Suspect]
     Indication: TYPE 2 DIABETES MELLITUS
     Dosage: 5 MG
     Route: 048
     Dates: start: 2013, end: 2013
  2. ONGLYZA [Suspect]
  3. GLIMEPIRIDE [Concomitant]
  4. POTASSIUM [Concomitant]
  5. FUROSEMIDE [Concomitant]
  6. PRAVASTATIN [Concomitant]
  7. LISINOPRIL [Concomitant]
  8. METFORMIN [Concomitant]
  9. LANTUS [Concomitant]
  10. UROXATRAL [Concomitant]

REACTIONS (2)
  - Swelling [Unknown]
  - Diabetes mellitus inadequate control [Not Recovered/Not Resolved]
